FAERS Safety Report 18935434 (Version 5)
Quarter: 2021Q2

REPORT INFORMATION
  Report Type: Report from Study
  Country: GB (occurrence: GB)
  Receive Date: 20210224
  Receipt Date: 20210419
  Transmission Date: 20210717
  Serious: Yes (Hospitalization, Other)
  Sender: FDA-Public Use
  Company Number: GB-BRISTOL-MYERS SQUIBB COMPANY-BMS-2021-016683

PATIENT
  Age: 5 Year
  Sex: Male
  Weight: 19.1 kg

DRUGS (9)
  1. NIVOLUMAB [Suspect]
     Active Substance: NIVOLUMAB
     Indication: NEUROBLASTOMA
     Dosage: 54 MILLIGRAM, Q2WK
     Route: 065
     Dates: end: 20210218
  2. NIVOLUMAB [Suspect]
     Active Substance: NIVOLUMAB
     Dosage: 54 MILLIGRAM, Q2WK
     Route: 065
     Dates: end: 20210304
  3. LANSOPRAZOLE. [Concomitant]
     Active Substance: LANSOPRAZOLE
     Indication: GASTRITIS
     Dosage: 15 MILLIGRAM
     Route: 048
  4. DINUTUXIMAB BETA [Suspect]
     Active Substance: DINUTUXIMAB BETA
     Dosage: 3.69 MG INFUSION 10 DAYS
     Route: 065
     Dates: end: 20210308
  5. COTRIMOXAZOLE [Concomitant]
     Active Substance: SULFAMETHOXAZOLE\TRIMETHOPRIM
     Indication: INFECTION PROPHYLAXIS
     Dosage: 240 MILLIGRAM, 2 DAYS A WEEK
     Route: 048
  6. DINUTUXIMAB BETA [Suspect]
     Active Substance: DINUTUXIMAB BETA
     Indication: NEUROBLASTOMA
     Dosage: 36.45 MILLIGRAM
     Dates: end: 20210131
  7. GABAPENTIN. [Concomitant]
     Active Substance: GABAPENTIN
     Indication: ANALGESIC THERAPY
     Dosage: 170 MILLIGRAM, TDS
     Route: 048
     Dates: start: 202011, end: 20210325
  8. 131?I MIBG [Suspect]
     Active Substance: IOBENGUANE I-131
     Indication: NEUROBLASTOMA
     Dosage: 3.53 (UNITS NOT SPECIFIED) STAT
     Route: 065
     Dates: end: 20201202
  9. 131?I MIBG [Suspect]
     Active Substance: IOBENGUANE I-131
     Dosage: 4.88 (UNITS NOT SPECIFIED) STAT
     Route: 065
     Dates: end: 20201216

REACTIONS (1)
  - Febrile neutropenia [Recovered/Resolved with Sequelae]

NARRATIVE: CASE EVENT DATE: 20210217
